FAERS Safety Report 21478163 (Version 1)
Quarter: 2022Q4

REPORT INFORMATION
  Report Type: Spontaneous
  Country: US (occurrence: None)
  Receive Date: 20221018
  Receipt Date: 20221018
  Transmission Date: 20230113
  Serious: Yes (Other)
  Sender: FDA-Public Use
  Company Number: None

PATIENT
  Age: 70 Year
  Sex: Female
  Weight: 85.5 kg

DRUGS (16)
  1. RHOPRESSA [Suspect]
     Active Substance: NETARSUDIL MESYLATE
     Indication: Eye drop instillation
     Route: 047
     Dates: start: 20221013, end: 20221014
  2. RHOPRESSA [Suspect]
     Active Substance: NETARSUDIL MESYLATE
     Indication: Glaucoma
  3. LISINOPRIL [Concomitant]
     Active Substance: LISINOPRIL
  4. NORTRIPTYLINE [Concomitant]
     Active Substance: NORTRIPTYLINE
  5. PANTOPRAZOLE [Concomitant]
     Active Substance: PANTOPRAZOLE
  6. FOLIC ACID [Concomitant]
     Active Substance: FOLIC ACID
  7. abatacept injection [Concomitant]
  8. METHOTREXATE [Concomitant]
     Active Substance: METHOTREXATE
  9. PREMARIN VAGINAL [Concomitant]
     Active Substance: ESTROGENS, CONJUGATED
  10. brominidine tartarate opthalmic drops [Concomitant]
  11. latanaprost opthalmic drops [Concomitant]
  12. diclofenac topical gel [Concomitant]
  13. VITAMIN D3 [Concomitant]
     Active Substance: CHOLECALCIFEROL
  14. ACETAMINOPHEN [Concomitant]
     Active Substance: ACETAMINOPHEN
  15. METHYLCELLULOSES [Concomitant]
     Active Substance: METHYLCELLULOSES
  16. MIRALAX [Concomitant]
     Active Substance: POLYETHYLENE GLYCOL 3350

REACTIONS (9)
  - Product substitution issue [None]
  - Product storage error [None]
  - Vision blurred [None]
  - Visual impairment [None]
  - Ocular hyperaemia [None]
  - Glare [None]
  - Physical product label issue [None]
  - Product use complaint [None]
  - Wrong technique in product usage process [None]

NARRATIVE: CASE EVENT DATE: 20221013
